FAERS Safety Report 14730504 (Version 1)
Quarter: 2018Q2

REPORT INFORMATION
  Report Type: Report from Study
  Country: US (occurrence: US)
  Receive Date: 20180406
  Receipt Date: 20180406
  Transmission Date: 20180711
  Serious: Yes (Hospitalization, Other)
  Sender: FDA-Public Use
  Company Number: US-UCBSA-2018014253

PATIENT
  Age: 23 Year
  Sex: Male

DRUGS (3)
  1. LAMICTAL [Concomitant]
     Active Substance: LAMOTRIGINE
     Indication: SEIZURE
     Dosage: UNK
  2. LACOSAMIDE. [Suspect]
     Active Substance: LACOSAMIDE
     Indication: PARTIAL SEIZURES
     Dosage: 200 MG, 2X/DAY (BID)
     Dates: start: 201710
  3. ATIVAN [Concomitant]
     Active Substance: LORAZEPAM
     Indication: SEIZURE
     Dosage: UNK

REACTIONS (5)
  - Joint dislocation [Not Recovered/Not Resolved]
  - Headache [Not Recovered/Not Resolved]
  - Insomnia [Not Recovered/Not Resolved]
  - Seizure [Not Recovered/Not Resolved]
  - Aura [Recovered/Resolved]

NARRATIVE: CASE EVENT DATE: 201803
